FAERS Safety Report 4611784-1 (Version None)
Quarter: 2005Q1

REPORT INFORMATION
  Report Type: 
  Country: None (occurrence: None)
  Receive Date: 20050308
  Receipt Date: 20041202
  Transmission Date: 20050727
  Serious: Yes (Other)
  Sender: FDA-Public Use
  Company Number: 2004UW24780

PATIENT
  Age: 80 Year
  Sex: Male
  Weight: 97.522 kg

DRUGS (2)
  1. CRESTOR [Suspect]
     Indication: HYPERCHOLESTEROLAEMIA
  2. ASPIRIN [Concomitant]

REACTIONS (2)
  - MUSCLE SPASMS [None]
  - URINE FLOW DECREASED [None]
